FAERS Safety Report 6583250-8 (Version None)
Quarter: 2010Q1

REPORT INFORMATION
  Report Type: 
  Country: None (occurrence: None)
  Receive Date: 20100125
  Receipt Date: 20091120
  Transmission Date: 20100710
  Serious: Yes (Hospitalization)
  Sender: FDA-Public Use
  Company Number: 2009BI032391

PATIENT
  Age: 25 Year
  Sex: Female

DRUGS (5)
  1. TYSABRI [Suspect]
     Indication: MULTIPLE SCLEROSIS
     Dosage: 300 MG;QM;IV
     Route: 042
     Dates: start: 20070731
  2. VESICARE [Concomitant]
  3. PAXIL [Concomitant]
  4. COPAXONE [Concomitant]
  5. REBIF [Concomitant]

REACTIONS (2)
  - MENSTRUATION IRREGULAR [None]
  - MULTIPLE SCLEROSIS [None]
